FAERS Safety Report 10377504 (Version 3)
Quarter: 2014Q3

REPORT INFORMATION
  Report Type: Spontaneous
  Country: JP (occurrence: JP)
  Receive Date: 20140812
  Receipt Date: 20140929
  Transmission Date: 20150326
  Serious: Yes (Other)
  Sender: FDA-Public Use
  Company Number: PHHY2014JP098746

PATIENT
  Age: 19 Year
  Sex: Female
  Weight: 52 kg

DRUGS (6)
  1. CLOZARIL [Suspect]
     Active Substance: CLOZAPINE
     Dosage: 325 MG, DAILY
     Route: 048
     Dates: start: 20140605, end: 20140629
  2. CLOZARIL [Suspect]
     Active Substance: CLOZAPINE
     Indication: SCHIZOPHRENIA
     Dosage: 262.5 MG, DAILY
     Route: 048
     Dates: start: 20140307
  3. CLOZARIL [Suspect]
     Active Substance: CLOZAPINE
     Dosage: 350 MG DAILY
     Route: 048
     Dates: end: 20140604
  4. RIVOTRIL [Concomitant]
     Active Substance: CLONAZEPAM
     Indication: AKATHISIA
     Dosage: 0.5 MG, UNK
     Route: 048
     Dates: start: 20140307
  5. LAMICTAL [Concomitant]
     Active Substance: LAMOTRIGINE
     Indication: EPILEPSY
     Dosage: 25 MG, UNK
     Route: 048
     Dates: start: 20140724
  6. CLOZARIL [Suspect]
     Active Substance: CLOZAPINE
     Dosage: 200 MG, DAILY
     Route: 048
     Dates: start: 20140630

REACTIONS (1)
  - Electroencephalogram abnormal [Recovered/Resolved]

NARRATIVE: CASE EVENT DATE: 20140611
